FAERS Safety Report 16432778 (Version 1)
Quarter: 2019Q2

REPORT INFORMATION
  Report Type: Spontaneous
  Country: US (occurrence: US)
  Receive Date: 20190614
  Receipt Date: 20190614
  Transmission Date: 20190711
  Serious: No
  Sender: FDA-Public Use
  Company Number: US-TARO-2019TAR00414

PATIENT
  Sex: Female
  Weight: 83.9 kg

DRUGS (3)
  1. FLUOCINONIDE CREAM USP 0.05%. [Suspect]
     Active Substance: FLUOCINONIDE
     Dosage: UNK, 1X/DAY
     Route: 061
     Dates: start: 2019
  2. UNSPECIFIED LOTION [Concomitant]
     Active Substance: UNSPECIFIED INGREDIENT
  3. FLUOCINONIDE CREAM USP 0.05%. [Suspect]
     Active Substance: FLUOCINONIDE
     Indication: ECZEMA
     Dosage: UNK, 1X/DAY
     Route: 061
     Dates: end: 2019

REACTIONS (3)
  - Product dose omission [Recovered/Resolved]
  - Product quality issue [Recovered/Resolved]
  - Therapeutic product effect decreased [Recovering/Resolving]

NARRATIVE: CASE EVENT DATE: 2019
